FAERS Safety Report 8052130-3 (Version None)
Quarter: 2012Q1

REPORT INFORMATION
  Report Type: 
  Country: None (occurrence: None)
  Receive Date: 20120118
  Receipt Date: 20120113
  Transmission Date: 20120608
  Serious: No
  Sender: FDA-Public Use
  Company Number: US-PFIZER INC-2012000001

PATIENT
  Age: 85 Year
  Sex: Female

DRUGS (3)
  1. LYRICA [Suspect]
     Indication: NEUROPATHY PERIPHERAL
     Dosage: 75 MG
     Route: 048
     Dates: start: 20111128, end: 20110101
  2. LYRICA [Suspect]
     Indication: HYPOAESTHESIA
     Dosage: UNK
     Route: 048
  3. GABAPENTIN [Suspect]
     Indication: NEUROPATHY PERIPHERAL
     Dosage: UNK
     Dates: end: 20110101

REACTIONS (6)
  - FEELING HOT [None]
  - PAIN IN EXTREMITY [None]
  - DRUG INEFFECTIVE [None]
  - HYPOAESTHESIA [None]
  - PARAESTHESIA [None]
  - FEELING ABNORMAL [None]
